FAERS Safety Report 10664765 (Version 1)
Quarter: 2014Q4

REPORT INFORMATION
  Report Type: Spontaneous
  Country: US (occurrence: None)
  Receive Date: 20141205
  Receipt Date: 20141205
  Transmission Date: 20150529
  Serious: Yes (Hospitalization, Other)
  Sender: FDA-Public Use
  Company Number: 163-POMAL-14080690

PATIENT
  Age: 75 Year
  Sex: Female

DRUGS (14)
  1. KETOCONAZOLE  (KETOCONAZOLE) [Concomitant]
     Active Substance: KETOCONAZOLE
  2. VITAMIN D (ERGOCALCIFEROL) [Concomitant]
     Active Substance: ERGOCALCIFEROL
  3. POMALYST [Suspect]
     Active Substance: POMALIDOMIDE
     Indication: PLASMA CELL MYELOMA
     Dosage: 21 IN 28D
     Route: 048
     Dates: start: 20140523, end: 20140716
  4. TRAMADOL HYDROCHLORIDE. [Concomitant]
     Active Substance: TRAMADOL HYDROCHLORIDE
  5. DEXAMETHASONE (DEXAMETHASONE) [Concomitant]
     Active Substance: DEXAMETHASONE
  6. VITAMIN B COMPLEX (PYRIDOXINE HYDROCHLORIDE, THIAMINE HYDROCHLORIDE, RIBOFLAVIN, NICOTINAMIDE, CALCIUM PANBTOTHENATE) [Concomitant]
  7. TOPROL XL (METOPROLOL SUCCINATE) [Concomitant]
  8. OXYCODONE HCL (OXYCODONE HYDROCHLORIDE) [Concomitant]
     Active Substance: OXYCODONE HYDROCHLORIDE
  9. PRAVASTATIN SODIUM (PRAVASTATIN SODIUM) [Concomitant]
  10. VITAMIN B12 [Concomitant]
     Active Substance: CYANOCOBALAMIN
  11. ASPIRINE (ACETYLSALICYLIC ACID) [Concomitant]
  12. AMIODARONE HCL (AMIODARONE HYDROCHLORIDE) [Concomitant]
     Active Substance: AMIODARONE HYDROCHLORIDE
  13. KYPROLIS [Concomitant]
     Active Substance: CARFILZOMIB
  14. CLOBETASOL PROPIONATE  (CLOBETASOL PROPIONATE) [Concomitant]

REACTIONS (4)
  - Dyspnoea [None]
  - Oedema peripheral [None]
  - Fatigue [None]
  - Atrial fibrillation [None]

NARRATIVE: CASE EVENT DATE: 20140716
